FAERS Safety Report 4766218-3 (Version None)
Quarter: 2005Q3

REPORT INFORMATION
  Report Type: 
  Country: None (occurrence: None)
  Receive Date: 20050912
  Receipt Date: 20050720
  Transmission Date: 20060218
  Serious: Yes (Death)
  Sender: FDA-Public Use
  Company Number: PHBS2005JP10507

PATIENT
  Age: 62 Year
  Sex: Male

DRUGS (3)
  1. NEORAL [Suspect]
     Indication: HISTIOCYTOSIS HAEMATOPHAGIC
     Dosage: UNK, UNK
     Route: 065
     Dates: start: 20031201
  2. AZATHIOPRINE [Concomitant]
     Indication: HISTIOCYTOSIS HAEMATOPHAGIC
     Dosage: UNK, UNK
     Route: 065
     Dates: start: 20031201
  3. PREDNISOLONE [Concomitant]
     Indication: HISTIOCYTOSIS HAEMATOPHAGIC
     Dosage: UNK, UNK
     Route: 065
     Dates: start: 20031201

REACTIONS (9)
  - ALVEOLAR PROTEINOSIS [None]
  - CARDIAC FAILURE [None]
  - CONDITION AGGRAVATED [None]
  - INTERSTITIAL LUNG DISEASE [None]
  - MYOCARDIAL INFARCTION [None]
  - PANCYTOPENIA [None]
  - PERITONEAL HAEMORRHAGE [None]
  - RESPIRATORY DISORDER [None]
  - VIRAL INFECTION [None]
